FAERS Safety Report 5811560-8 (Version None)
Quarter: 2008Q3

REPORT INFORMATION
  Report Type: 
  Country: None (occurrence: None)
  Receive Date: 20080716
  Receipt Date: 20080711
  Transmission Date: 20090109
  Serious: Yes (Hospitalization)
  Sender: FDA-Public Use
  Company Number: JP-MERCK-0807USA02354

PATIENT
  Age: 93 Year
  Sex: Female

DRUGS (4)
  1. HYZAAR [Suspect]
     Route: 048
     Dates: end: 20080628
  2. ONEALFA [Suspect]
     Route: 065
     Dates: end: 20080628
  3. CALBLOCK [Concomitant]
     Route: 048
  4. MAGNESIUM OXIDE [Concomitant]
     Route: 048

REACTIONS (4)
  - ALTERED STATE OF CONSCIOUSNESS [None]
  - BLOOD CALCIUM INCREASED [None]
  - DEHYDRATION [None]
  - RENAL IMPAIRMENT [None]
